FAERS Safety Report 6557666-X (Version None)
Quarter: 2010Q1

REPORT INFORMATION
  Report Type: 
  Country: None (occurrence: None)
  Receive Date: 20100129
  Receipt Date: 20090918
  Transmission Date: 20100710
  Serious: No
  Sender: FDA-Public Use
  Company Number: A0808890A

PATIENT
  Age: 24 Year
  Sex: Female

DRUGS (1)
  1. COMBIVIR [Suspect]
     Indication: PROPHYLAXIS
     Route: 048
     Dates: start: 20090916, end: 20090916

REACTIONS (1)
  - OVERDOSE [None]
